FAERS Safety Report 19673869 (Version 1)
Quarter: 2021Q3

REPORT INFORMATION
  Report Type: Spontaneous
  Country: US (occurrence: US)
  Receive Date: 20210809
  Receipt Date: 20210809
  Transmission Date: 20211014
  Serious: Yes (Other)
  Sender: FDA-Public Use
  Company Number: US-ACCORD-177933

PATIENT
  Age: 62 Year
  Sex: Female

DRUGS (8)
  1. ACETYLSALICYLIC ACID [Concomitant]
     Active Substance: ASPIRIN
     Dosage: LOW DOSE
  2. CYTOXAN [Suspect]
     Active Substance: CYCLOPHOSPHAMIDE
     Indication: BREAST CANCER
     Dates: start: 20141124, end: 20150309
  3. DORZOLAMIDE [Concomitant]
     Active Substance: DORZOLAMIDE
  4. FML [Concomitant]
     Active Substance: FLUOROMETHOLONE
  5. DIGOXIN. [Concomitant]
     Active Substance: DIGOXIN
  6. RESTASIS [Concomitant]
     Active Substance: CYCLOSPORINE
  7. ATENOLOL/ATENOLOL HYDROCHLORIDE [Concomitant]
     Active Substance: ATENOLOL HYDROCHLORIDE
     Dates: start: 200608, end: 20130109
  8. DOCETAXEL ACCORD [Suspect]
     Active Substance: DOCETAXEL
     Indication: BREAST CANCER
     Dates: start: 20141124, end: 20150309

REACTIONS (1)
  - Alopecia [Not Recovered/Not Resolved]

NARRATIVE: CASE EVENT DATE: 2015
